FAERS Safety Report 20463323 (Version 1)
Quarter: 2022Q1

REPORT INFORMATION
  Report Type: Spontaneous
  Country: US (occurrence: US)
  Receive Date: 20220211
  Receipt Date: 20220211
  Transmission Date: 20220423
  Serious: Yes (Other)
  Sender: FDA-Public Use
  Company Number: US-NOVARTISPH-NVSC2022US030468

PATIENT
  Age: 50 Year
  Sex: Male

DRUGS (2)
  1. RANITIDINE [Suspect]
     Active Substance: RANITIDINE
     Indication: Neoplasm malignant
     Dosage: 300 MG,,DAILY,
     Route: 048
     Dates: start: 201301, end: 201912
  2. RANITIDINE [Suspect]
     Active Substance: RANITIDINE
     Indication: Neoplasm malignant
     Dosage: 300 MG,,DAILY,
     Route: 048
     Dates: start: 201301, end: 201912

REACTIONS (3)
  - Oesophageal carcinoma [Unknown]
  - Throat cancer [Unknown]
  - Nasal cavity cancer [Unknown]

NARRATIVE: CASE EVENT DATE: 20170101
